FAERS Safety Report 8275171 (Version 9)
Quarter: 2013Q1

REPORT INFORMATION
  Report Type: Spontaneous
  Country: US (occurrence: US)
  Receive Date: 20111205
  Receipt Date: 20130315
  Transmission Date: 20140127
  Serious: Yes (Hospitalization, Congenital Anomaly, Other)
  Sender: FDA-Public Use
  Company Number: US-PFIZER INC-2011227136

PATIENT
  Age: 10 Week
  Sex: Male
  Weight: 2.54 kg

DRUGS (15)
  1. ZOLOFT [Suspect]
     Indication: PANIC DISORDER
     Dosage: UNK
     Route: 064
     Dates: start: 199903, end: 200812
  2. ZOLOFT [Suspect]
     Indication: ANXIETY
     Dosage: 100 MG, UNK
     Route: 064
     Dates: start: 19990602
  3. ZOLOFT [Suspect]
     Indication: DEPRESSION
     Dosage: 50 MG, 1X/DAY
     Route: 064
     Dates: start: 20010626
  4. ZOLOFT [Suspect]
     Dosage: 100 MG, 1X/DAY
     Route: 064
     Dates: start: 20011017
  5. ZOLOFT [Suspect]
     Dosage: 100 MG, 2X/DAY
     Route: 064
     Dates: start: 20050510
  6. LOVENOX [Concomitant]
     Dosage: 40 MG, PER DAY
     Route: 064
     Dates: start: 20070127
  7. PRENATAL VITAMINS [Concomitant]
     Dosage: UNK
     Route: 064
     Dates: start: 20070127
  8. IRON [Concomitant]
     Dosage: UNK
     Route: 064
  9. PATADAY [Concomitant]
     Dosage: 1 GTT, IN BOTH EYES EVERY DAY AS NEEDED
     Route: 064
     Dates: start: 20081204
  10. LOVENOX [Concomitant]
     Dosage: 0.4 ML, 1X/DAY
     Route: 064
     Dates: start: 20081210
  11. LOVENOX [Concomitant]
     Dosage: 1 DF (SYRINGE), 1X/DAY
     Route: 064
     Dates: start: 20090129
  12. LOVENOX [Concomitant]
     Dosage: UNIT AS DIRECTED
     Route: 064
     Dates: start: 20090304
  13. NATATAB RX [Concomitant]
     Dosage: ONCE DAILY
     Route: 064
     Dates: start: 20081117
  14. PRENATAL 19 [Concomitant]
     Dosage: ONCE DAILY
     Route: 064
     Dates: start: 20090311
  15. SERTRALINE [Concomitant]
     Dosage: 200 MG, 1X/DAY (100 MG TWO TABLETS)
     Route: 064
     Dates: start: 20081010

REACTIONS (15)
  - Maternal exposure timing unspecified [Unknown]
  - Ventricular septal defect [Recovered/Resolved]
  - Cardiac failure congestive [Unknown]
  - Atrioventricular block complete [Recovered/Resolved]
  - Pulmonary hypertension [Recovered/Resolved]
  - Pulmonary oedema [Unknown]
  - Failure to thrive [Unknown]
  - Atrial septal defect [Recovered/Resolved]
  - Diastolic dysfunction [Unknown]
  - Pulmonary artery dilatation [Unknown]
  - Dilatation ventricular [Unknown]
  - Right ventricular hypertrophy [Unknown]
  - Cardiomegaly [Not Recovered/Not Resolved]
  - Cyanosis [Unknown]
  - Pulmonary valve incompetence [Unknown]
